FAERS Safety Report 5284549-8 (Version None)
Quarter: 2007Q2

REPORT INFORMATION
  Report Type: 
  Country: None (occurrence: None)
  Receive Date: 20070403
  Receipt Date: 20070325
  Transmission Date: 20071010
  Serious: Yes (Disabling)
  Sender: FDA-Public Use
  Company Number: BE-GLAXOSMITHKLINE-B0462210A

PATIENT
  Age: 52 Year
  Sex: Male
  Weight: 105 kg

DRUGS (6)
  1. AVANDIA [Suspect]
     Indication: DIABETES MELLITUS NON-INSULIN-DEPENDENT
     Dosage: 8MG PER DAY
     Dates: start: 20030312
  2. METFORMIN [Concomitant]
     Indication: DIABETES MELLITUS NON-INSULIN-DEPENDENT
     Dosage: 850MG TWICE PER DAY
  3. ASPIRIN [Concomitant]
     Indication: DIABETES MELLITUS NON-INSULIN-DEPENDENT
  4. LIPITOR [Concomitant]
  5. VIAGRA [Concomitant]
     Indication: ERECTILE DYSFUNCTION
     Dates: start: 20000516
  6. NSAIDS [Concomitant]
     Route: 065

REACTIONS (4)
  - EYEBALL AVULSION [None]
  - RETINAL DETACHMENT [None]
  - VITREOUS HAEMORRHAGE [None]
  - WEIGHT INCREASED [None]
